FAERS Safety Report 4853324-8 (Version None)
Quarter: 2005Q4

REPORT INFORMATION
  Report Type: 
  Country: None (occurrence: None)
  Receive Date: 20051214
  Receipt Date: 20051205
  Transmission Date: 20060501
  Serious: Yes (Disabling)
  Sender: FDA-Public Use
  Company Number: FR-GLAXOSMITHKLINE-B0402970A

PATIENT
  Age: 30 Year
  Sex: Male
  Weight: 89.5 kg

DRUGS (1)
  1. EPIVIR [Suspect]
     Indication: HIV INFECTION
     Dosage: 1TAB PER DAY
     Route: 048
     Dates: start: 20040827, end: 20051107

REACTIONS (3)
  - MITOCHONDRIAL CYTOPATHY [None]
  - MUSCLE SPASMS [None]
  - NEURALGIA [None]
